FAERS Safety Report 8734190 (Version 7)
Quarter: 2014Q1

REPORT INFORMATION
  Report Type: Spontaneous
  Country: US (occurrence: US)
  Receive Date: 20120821
  Receipt Date: 20140321
  Transmission Date: 20141002
  Serious: Yes (Hospitalization)
  Sender: FDA-Public Use
  Company Number: US-B.I. PHARMACEUTICALS,INC./RIDGEFIELD-2012-BP-19157BP

PATIENT
  Age: 64 Year
  Sex: Male
  Weight: 99.79 kg

DRUGS (9)
  1. PRADAXA [Suspect]
     Indication: ATRIAL FIBRILLATION
     Dosage: 300 MG
     Route: 048
     Dates: start: 20110526, end: 20110816
  2. PRADAXA [Suspect]
     Indication: ATRIAL FLUTTER
  3. CRESTOR [Concomitant]
     Dosage: 40 MG
     Route: 048
     Dates: start: 20110114, end: 201202
  4. ASPIRIN [Concomitant]
     Dosage: 81 MG
     Route: 048
  5. LASIX [Concomitant]
     Dosage: 40 MG
     Route: 048
  6. MAGNESIUM OXIDE [Concomitant]
     Dosage: 800 MG
     Route: 048
  7. METFORMIN [Concomitant]
     Dosage: 2000 MG
     Route: 048
  8. LOPRESSOR [Concomitant]
     Dosage: 25 MG
     Route: 048
     Dates: start: 20110505, end: 201201
  9. DIOVAN [Concomitant]
     Route: 065
     Dates: start: 201105, end: 201201

REACTIONS (1)
  - Haemorrhage intracranial [Recovered/Resolved]
